FAERS Safety Report 8404904-4 (Version None)
Quarter: 2012Q2

REPORT INFORMATION
  Report Type: 
  Country: None (occurrence: None)
  Receive Date: 20120601
  Receipt Date: 20110617
  Transmission Date: 20120825
  Serious: No
  Sender: FDA-Public Use
  Company Number: US-ASTRAZENECA-2011SE37345

PATIENT
  Age: 45 Year
  Sex: Female

DRUGS (1)
  1. ATACAND HCT [Suspect]
     Route: 048

REACTIONS (7)
  - HYPERTENSION [None]
  - WEIGHT INCREASED [None]
  - BLOOD GLUCOSE INCREASED [None]
  - DIABETES MELLITUS [None]
  - OEDEMA PERIPHERAL [None]
  - CHEST PAIN [None]
  - DYSPNOEA EXERTIONAL [None]
